FAERS Safety Report 9346249 (Version 1)
Quarter: 2013Q2

REPORT INFORMATION
  Report Type: Spontaneous
  Country: ES (occurrence: ES)
  Receive Date: 20130613
  Receipt Date: 20130613
  Transmission Date: 20140414
  Serious: Yes (Other)
  Sender: FDA-Public Use
  Company Number: ES-ROCHE-1233079

PATIENT
  Age: 63 Year
  Sex: Male

DRUGS (6)
  1. PEG-INTERFERON ALFA 2A [Suspect]
     Indication: CHRONIC HEPATITIS C
     Route: 065
     Dates: start: 20121109
  2. PEG-INTERFERON ALFA 2A [Suspect]
     Indication: FIBROSIS
  3. RIBAVIRIN [Suspect]
     Indication: CHRONIC HEPATITIS C
     Route: 065
     Dates: start: 20121109
  4. RIBAVIRIN [Suspect]
     Indication: FIBROSIS
  5. BOCEPREVIR [Suspect]
     Indication: CHRONIC HEPATITIS C
     Route: 065
     Dates: start: 20121218
  6. BOCEPREVIR [Suspect]
     Indication: FIBROSIS

REACTIONS (2)
  - Peritonitis bacterial [Recovered/Resolved]
  - Anaemia [Unknown]
